FAERS Safety Report 4670022-4 (Version None)
Quarter: 2005Q2

REPORT INFORMATION
  Report Type: 
  Country: None (occurrence: None)
  Receive Date: 20050520
  Receipt Date: 20050509
  Transmission Date: 20051028
  Serious: Yes (Other)
  Sender: FDA-Public Use
  Company Number: 2005065936

PATIENT
  Age: 32 Year
  Sex: Female
  Weight: 65.7716 kg

DRUGS (1)
  1. CELEBREX [Suspect]
     Indication: ARTHRALGIA
     Dosage: 200 MG (200 MG, 1 IN 1 D), ORAL
     Route: 048
     Dates: start: 20050318, end: 20050331

REACTIONS (7)
  - ABDOMINAL PAIN [None]
  - CERVICAL POLYP [None]
  - DRUG INEFFECTIVE [None]
  - DYSPLASIA [None]
  - NAUSEA [None]
  - UTERINE POLYP [None]
  - VAGINAL HAEMORRHAGE [None]
